FAERS Safety Report 8881697 (Version 2)
Quarter: 2013Q1

REPORT INFORMATION
  Report Type: Spontaneous
  Country: US (occurrence: US)
  Receive Date: 20121105
  Receipt Date: 20130104
  Transmission Date: 20140127
  Serious: Yes (Hospitalization)
  Sender: FDA-Public Use
  Company Number: US-JNJFOC-20121015674

PATIENT
  Age: 22 Year
  Sex: Male

DRUGS (7)
  1. RISPERDAL CONSTA [Suspect]
     Indication: SCHIZOPHRENIA, PARANOID TYPE
     Route: 030
     Dates: start: 20110630, end: 20121024
  2. ZYPREXA [Concomitant]
     Dosage: 1 EVERY NIGHT (HOUR OF SLEEP)
     Route: 065
  3. ZYPREXA [Concomitant]
     Route: 065
  4. DEPAKOTE [Concomitant]
     Route: 065
  5. DEPAKOTE [Concomitant]
     Route: 065
  6. DESYREL [Concomitant]
     Route: 065
  7. DESYREL [Concomitant]
     Dosage: 1 EVERY NIGHT (HOUR OF SLEEP)
     Route: 065

REACTIONS (1)
  - Pulmonary embolism [Recovered/Resolved]
